FAERS Safety Report 22715254 (Version 2)
Quarter: 2024Q2

REPORT INFORMATION
  Report Type: Spontaneous
  Country: US (occurrence: US)
  Receive Date: 20230718
  Receipt Date: 20240617
  Transmission Date: 20240716
  Serious: No
  Sender: FDA-Public Use
  Company Number: US-BIOGEN-2021BI00975157

PATIENT
  Sex: Female

DRUGS (4)
  1. AVONEX PEN [Suspect]
     Active Substance: INTERFERON BETA-1A
     Indication: Multiple sclerosis
     Route: 050
     Dates: start: 20200918
  2. AVONEX PEN [Suspect]
     Active Substance: INTERFERON BETA-1A
  3. AVONEX PEN [Suspect]
     Active Substance: INTERFERON BETA-1A
  4. AVONEX PEN [Suspect]
     Active Substance: INTERFERON BETA-1A

REACTIONS (8)
  - Hypervolaemia [Unknown]
  - Electrolyte imbalance [Unknown]
  - Stress [Unknown]
  - Muscle twitching [Recovered/Resolved]
  - Muscle spasms [Unknown]
  - Headache [Unknown]
  - Injection site pain [Unknown]
  - Influenza like illness [Recovered/Resolved]
